FAERS Safety Report 9989299 (Version 3)
Quarter: 2014Q2

REPORT INFORMATION
  Report Type: Spontaneous
  Country: US (occurrence: US)
  Receive Date: 20140310
  Receipt Date: 20140430
  Transmission Date: 20141212
  Serious: Yes (Other)
  Sender: FDA-Public Use
  Company Number: US-009507513-1403USA003279

PATIENT
  Sex: 0

DRUGS (1)
  1. TEMODAR [Suspect]
     Dosage: UNK
     Route: 048

REACTIONS (2)
  - Gastrostomy [Unknown]
  - Drug prescribing error [Unknown]
